FAERS Safety Report 8171345-7 (Version None)
Quarter: 2012Q1

REPORT INFORMATION
  Report Type: 
  Country: None (occurrence: None)
  Receive Date: 20120104
  Receipt Date: 20111205
  Transmission Date: 20120608
  Serious: No
  Sender: FDA-Public Use
  Company Number: 2011HGS-002917

PATIENT
  Age: 69 Year
  Sex: Female
  Weight: 81.6475 kg

DRUGS (15)
  1. GLYBURIDE [Concomitant]
  2. IMITREX(SUMATRIPTAN)(SUMATRIPTAN) [Concomitant]
  3. CALCIUM PLUS VITAMIN D(VITACAL)(CALCIUM, [Concomitant]
  4. VITAMIN B12(CYANOCOBALAMIN)(CYANOCOBALAMIN) [Concomitant]
  5. BENLYSTA [Suspect]
     Indication: SYSTEMIC LUPUS ERYTHEMATOSUS
     Dosage: 10 MG/KG, 1 IN 28 D,  INTRAVENOUS DRIP
     Route: 041
     Dates: start: 20111118
  6. PREDNISONE [Concomitant]
  7. LEVOTHYROXINE SODIUM [Concomitant]
  8. METFORMIN HCL [Concomitant]
  9. LASIX(LASIX /SCH/)(FUROSEMIDE, FUROSEMIDE SODIUM) [Concomitant]
  10. ZYRTEC [Concomitant]
  11. IMURAN [Concomitant]
  12. MULTIVITAMIN(MULTIVITAMINS)(ERGOCALCIFEROL, ASCORBIC ACID, FOLIC ACID, [Concomitant]
  13. OMEPRAZOLE [Concomitant]
  14. SINGULAIR(MONTELUKAST)(MONTELUKAST) [Concomitant]
  15. LOVASTATIN [Concomitant]

REACTIONS (6)
  - PULMONARY CONGESTION [None]
  - BLOOD GLUCOSE INCREASED [None]
  - RESTLESSNESS [None]
  - PRODUCTIVE COUGH [None]
  - LOWER RESPIRATORY TRACT INFECTION [None]
  - INSOMNIA [None]
